FAERS Safety Report 10052341 (Version 1)
Quarter: 2014Q2

REPORT INFORMATION
  Report Type: Report from Study
  Country: US (occurrence: US)
  Receive Date: 20140402
  Receipt Date: 20140402
  Transmission Date: 20141212
  Serious: Yes (Other)
  Sender: FDA-Public Use
  Company Number: US-JNJFOC-20140316463

PATIENT
  Age: 33 Year
  Sex: Female
  Weight: 86.18 kg

DRUGS (6)
  1. SIMPONI [Suspect]
     Indication: RHEUMATOID ARTHRITIS
     Route: 058
     Dates: start: 2011, end: 20130415
  2. METHOTREXATE [Concomitant]
     Indication: RHEUMATOID ARTHRITIS
     Route: 048
     Dates: start: 200401
  3. MELOXICAM [Concomitant]
     Indication: RHEUMATOID ARTHRITIS
     Route: 048
     Dates: start: 200401
  4. FOLIC ACID [Concomitant]
     Indication: RHEUMATOID ARTHRITIS
     Route: 048
     Dates: start: 200401
  5. CALCIUM [Concomitant]
     Route: 048
     Dates: start: 200401
  6. PRENATAL  VITAMINS [Concomitant]
     Indication: PREGNANCY
     Route: 048
     Dates: start: 201304, end: 201401

REACTIONS (2)
  - Labour complication [Recovered/Resolved]
  - Exposure during pregnancy [Recovered/Resolved]
